FAERS Safety Report 13191247 (Version 1)
Quarter: 2017Q1

REPORT INFORMATION
  Report Type: Spontaneous
  Country: US (occurrence: US)
  Receive Date: 20170206
  Receipt Date: 20170206
  Transmission Date: 20170428
  Serious: Yes (Disabling)
  Sender: FDA-Public Use
  Company Number: None

PATIENT
  Age: 39 Year
  Sex: Female
  Weight: 116.1 kg

DRUGS (7)
  1. LEXOFLOXICAN [Concomitant]
  2. DIFLUCAN [Concomitant]
     Active Substance: FLUCONAZOLE
  3. MOTRIN [Concomitant]
     Active Substance: IBUPROFEN
  4. PREDNISONE. [Concomitant]
     Active Substance: PREDNISONE
  5. MECLIZINE [Concomitant]
     Active Substance: MECLIZINE HYDROCHLORIDE
  6. STEROID SHOT [Concomitant]
     Active Substance: UNSPECIFIED INGREDIENT
  7. LEVOFLOXACIN. [Suspect]
     Active Substance: LEVOFLOXACIN
     Indication: BRONCHITIS
     Dosage: ?          QUANTITY:1 CAPSULE(S);?
     Route: 048
     Dates: start: 20170116, end: 20170124

REACTIONS (7)
  - Back pain [None]
  - Depressed level of consciousness [None]
  - Burning sensation [None]
  - Pain in extremity [None]
  - Muscle spasms [None]
  - Dyspnoea [None]
  - Tendon pain [None]

NARRATIVE: CASE EVENT DATE: 20170124
